FAERS Safety Report 20381581 (Version 1)
Quarter: 2022Q1

REPORT INFORMATION
  Report Type: Spontaneous
  Country: US (occurrence: US)
  Receive Date: 20220127
  Receipt Date: 20220127
  Transmission Date: 20220423
  Serious: Yes (Other)
  Sender: FDA-Public Use
  Company Number: US-GLAXOSMITHKLINE-US2022GSK014931

PATIENT
  Sex: Female

DRUGS (2)
  1. ZANTAC [Suspect]
     Active Substance: RANITIDINE HYDROCHLORIDE
     Indication: Product used for unknown indication
     Dosage: UNK UNK, WE, AT LEAST 4 TIMES A WEEK
     Route: 065
     Dates: start: 200001, end: 200512
  2. ZANTAC [Suspect]
     Active Substance: RANITIDINE HYDROCHLORIDE
     Indication: Product used for unknown indication
     Dosage: UNK UNK, WE, AT LEAST 4 TIMES A WEEK
     Route: 065
     Dates: start: 200001, end: 200512

REACTIONS (2)
  - Bladder cancer [Unknown]
  - Renal cancer [Unknown]
